FAERS Safety Report 9979685 (Version 1)
Quarter: 2014Q1

REPORT INFORMATION
  Report Type: Report from Study
  Country: US (occurrence: US)
  Receive Date: 20140306
  Receipt Date: 20140306
  Transmission Date: 20141002
  Serious: No
  Sender: FDA-Public Use
  Company Number: US-ABBVIE-13P-163-1168537-00

PATIENT
  Sex: Female

DRUGS (8)
  1. HUMIRA [Suspect]
     Indication: CROHN^S DISEASE
     Dates: start: 20130913, end: 20130913
  2. HUMIRA [Suspect]
     Dates: start: 20130927, end: 20130927
  3. GABAPENTIN [Concomitant]
     Indication: PRODUCT USED FOR UNKNOWN INDICATION
  4. ZANTAC [Concomitant]
     Indication: GASTROOESOPHAGEAL REFLUX DISEASE
  5. PRILOSEC [Concomitant]
     Indication: GASTROOESOPHAGEAL REFLUX DISEASE
  6. UNKNOWN MEDICATION [Concomitant]
     Indication: RHEUMATOID ARTHRITIS
  7. VALTREX [Concomitant]
     Indication: HERPES ZOSTER
     Dosage: EVERY ONCE IN A WHILE
  8. INHALER [Concomitant]
     Indication: ASTHMA

REACTIONS (1)
  - Rash [Recovered/Resolved]
